FAERS Safety Report 6988211-2 (Version None)
Quarter: 2010Q3

REPORT INFORMATION
  Report Type: 
  Country: None (occurrence: None)
  Receive Date: 20100916
  Receipt Date: 20100913
  Transmission Date: 20110219
  Serious: Yes (Death, Other)
  Sender: FDA-Public Use
  Company Number: IN-ROCHE-726580

PATIENT
  Age: 22 Year
  Sex: Female

DRUGS (9)
  1. ALL-TRANS-RETINOIC ACID [Suspect]
     Route: 065
  2. ALL-TRANS-RETINOIC ACID [Suspect]
     Dosage: CYCLES OF HIGH DOSE ATRA
     Route: 065
  3. ALL-TRANS-RETINOIC ACID [Suspect]
     Dosage: 6 CYCLES OF ITERMITTANT ATRA
     Route: 065
  4. DAUNORUBICIN HCL [Concomitant]
     Dosage: ON DAY 2,3 AND 4 OF START OF ATRA
  5. CYTARABINE [Concomitant]
     Dosage: 3 HIGH DOSE CYCLES
  6. CYTARABINE [Concomitant]
     Dosage: INTRATHECAL THERAPY
  7. 6-MERCAPTOPURINE [Concomitant]
     Dosage: 6 CYCLES OF MAINTENANCE
  8. METHOTREXATE [Concomitant]
     Dosage: 6 CYCLES OF MAINTENANCE
  9. METHOTREXATE [Concomitant]
     Dosage: INTRATHECAL THERAPY

REACTIONS (6)
  - ARTHRALGIA [None]
  - HEADACHE [None]
  - NAUSEA [None]
  - PYREXIA [None]
  - RETINOIC ACID SYNDROME [None]
  - SEPSIS [None]
